FAERS Safety Report 8005142-X (Version None)
Quarter: 2011Q4

REPORT INFORMATION
  Report Type: 
  Country: None (occurrence: None)
  Receive Date: 20111223
  Receipt Date: 20111215
  Transmission Date: 20120403
  Serious: Yes (Hospitalization)
  Sender: FDA-Public Use
  Company Number: PHHY2011FR109684

PATIENT
  Sex: Male

DRUGS (7)
  1. FORADIL [Suspect]
     Dates: start: 20100901
  2. LANSOPRAZOLE [Concomitant]
     Dosage: 1 DF, QD
  3. TRANXENE [Concomitant]
     Dosage: 10 MG, QD
  4. MICARDIS [Concomitant]
     Dosage: 40 MG, QD
  5. PREVISCAN [Suspect]
     Dosage: 1.25 DF, QD
     Dates: start: 20100901, end: 20101018
  6. DILTIAZEM HCL [Suspect]
     Dosage: 90 MG, QD
     Dates: start: 20100901, end: 20101001
  7. NOZINAN [Concomitant]

REACTIONS (10)
  - TACHYCARDIA [None]
  - PYREXIA [None]
  - HYPOTENSION [None]
  - TOXIC SKIN ERUPTION [None]
  - RENAL FAILURE [None]
  - SEPSIS [None]
  - PNEUMONIA [None]
  - RASH MACULO-PAPULAR [None]
  - SKIN EXFOLIATION [None]
  - URTICARIA [None]
